FAERS Safety Report 17814662 (Version 5)
Quarter: 2020Q2

REPORT INFORMATION
  Report Type: Spontaneous
  Country: US (occurrence: US)
  Receive Date: 20200522
  Receipt Date: 20200612
  Transmission Date: 20200714
  Serious: No
  Sender: FDA-Public Use
  Company Number: US-BIOGEN-2020BI00866297

PATIENT
  Age: 47 Year
  Sex: Female

DRUGS (2)
  1. TECFIDERA [Suspect]
     Active Substance: DIMETHYL FUMARATE
     Indication: MULTIPLE SCLEROSIS
     Route: 048
     Dates: start: 20200410, end: 20200426
  2. TECFIDERA [Suspect]
     Active Substance: DIMETHYL FUMARATE
     Route: 048
     Dates: start: 20200427, end: 20200506

REACTIONS (15)
  - Fatigue [Not Recovered/Not Resolved]
  - Faeces discoloured [Recovered/Resolved]
  - Abdominal distension [Not Recovered/Not Resolved]
  - Hot flush [Recovered/Resolved]
  - Pain in extremity [Unknown]
  - Pain [Unknown]
  - Gastrointestinal motility disorder [Recovered/Resolved]
  - Oropharyngeal discomfort [Not Recovered/Not Resolved]
  - Hypersomnia [Not Recovered/Not Resolved]
  - Skin tightness [Unknown]
  - Palpitations [Unknown]
  - Frequent bowel movements [Not Recovered/Not Resolved]
  - Abdominal pain upper [Recovered/Resolved]
  - Akinesia [Unknown]
  - Dyspnoea [Unknown]

NARRATIVE: CASE EVENT DATE: 20200420
